FAERS Safety Report 7826647-8 (Version None)
Quarter: 2011Q4

REPORT INFORMATION
  Report Type: 
  Country: None (occurrence: None)
  Receive Date: 20111020
  Receipt Date: 20111014
  Transmission Date: 20120403
  Serious: Yes (Life-Threatening, Hospitalization)
  Sender: FDA-Public Use
  Company Number: CA-CELGENEUS-028-21660-11101704

PATIENT
  Age: 56 Year
  Sex: Female
  Weight: 75 kg

DRUGS (17)
  1. DIMENHYDRINATE [Concomitant]
     Route: 065
  2. PROCHLORPERAZINE [Concomitant]
     Route: 065
  3. ACETAMINOPHEN [Concomitant]
     Route: 065
  4. LORAZEPAM [Concomitant]
     Route: 065
  5. TPN [Concomitant]
     Route: 065
  6. ATACAND [Concomitant]
     Route: 048
  7. FENTANYL [Concomitant]
     Route: 065
  8. LACTULOSE [Concomitant]
     Route: 065
  9. ABRAXANE [Suspect]
     Dosage: 235 MILLIGRAM
     Route: 041
  10. DOCUSATE [Concomitant]
     Route: 065
  11. EPREX [Concomitant]
     Route: 041
  12. MORPHINE [Concomitant]
     Route: 065
  13. DOMPERIDONE [Concomitant]
     Route: 048
  14. PANTOPRAZOLE [Concomitant]
     Route: 065
  15. SODIUM CHLORIDE INJ [Concomitant]
     Route: 065
  16. ZOPICLONE [Concomitant]
     Route: 048
  17. SENNA-MINT WAF [Concomitant]
     Route: 065

REACTIONS (1)
  - RENAL FAILURE ACUTE [None]
